FAERS Safety Report 10652273 (Version 1)
Quarter: 2014Q4

REPORT INFORMATION
  Report Type: Spontaneous
  Country: FR (occurrence: FR)
  Receive Date: 20141215
  Receipt Date: 20141215
  Transmission Date: 20150529
  Serious: Yes (Hospitalization)
  Sender: FDA-Public Use
  Company Number: FR-SA-2014SA169104

PATIENT
  Age: 76 Year
  Sex: Male

DRUGS (15)
  1. LASILIX SPECIAL [Suspect]
     Active Substance: FUROSEMIDE
     Dosage: STRENGTH: 500 MG; SCORED TABLET
     Route: 048
  2. ALDACTONE [Suspect]
     Active Substance: SPIRONOLACTONE
     Dosage: STRENGTH: 50 MG?FORM: FILM COATED DIVISIBLE TABLET
     Route: 048
  3. CALCIUM CARBONATE/COLECALCIFEROL [Concomitant]
     Dosage: FILM COATED DIVISIBLE TABLET
     Route: 048
  4. TAREG [Suspect]
     Active Substance: VALSARTAN
     Dosage: STRENGTH: 160 MG
     Route: 048
  5. INNOHEP [Suspect]
     Active Substance: TINZAPARIN SODIUM
     Route: 058
  6. INNOHEP [Suspect]
     Active Substance: TINZAPARIN SODIUM
     Route: 058
  7. ALLOPURINOL. [Concomitant]
     Active Substance: ALLOPURINOL
     Dosage: 100 MG
     Route: 048
  8. TAREG [Suspect]
     Active Substance: VALSARTAN
     Dosage: STRENGTH: 160 MG
     Route: 048
     Dates: end: 20140807
  9. ALDACTONE [Suspect]
     Active Substance: SPIRONOLACTONE
     Dosage: STRENGTH: 50 MG?FORM: FILM COATED DIVISIBLE TABLET
     Route: 048
  10. SEROPRAM [Suspect]
     Active Substance: CITALOPRAM HYDROBROMIDE
     Route: 048
     Dates: start: 20140716, end: 20140810
  11. CORDARONE [Concomitant]
     Active Substance: AMIODARONE HYDROCHLORIDE
     Indication: ATRIAL FIBRILLATION
     Dates: start: 200905
  12. TAHOR [Concomitant]
     Active Substance: ATORVASTATIN CALCIUM
     Route: 048
  13. TEMERIT [Concomitant]
     Active Substance: NEBIVOLOL
     Dosage: 5 MG, TABLET DIVISIBLE IN FOUR PARTS
     Route: 048
  14. HEMIGOXINE NATIVELLE [Concomitant]
     Active Substance: DIGOXIN
     Dosage: 1 IN 2 DAYS
     Route: 048
  15. LASILIX SPECIAL [Suspect]
     Active Substance: FUROSEMIDE
     Route: 048

REACTIONS (5)
  - Hyponatraemia [Unknown]
  - Malaise [Recovered/Resolved]
  - Hypotension [Unknown]
  - Hyperkalaemia [Unknown]
  - Renal failure [Unknown]

NARRATIVE: CASE EVENT DATE: 20140807
